FAERS Safety Report 8928762 (Version 1)
Quarter: 2012Q4

REPORT INFORMATION
  Report Type: Spontaneous
  Country: US (occurrence: None)
  Receive Date: 20121126
  Receipt Date: 20121126
  Transmission Date: 20130627
  Serious: Yes (Other)
  Sender: FDA-Public Use
  Company Number: None

PATIENT
  Age: 26 Year
  Sex: Female
  Weight: 54.89 kg

DRUGS (1)
  1. VANCOMYCIN [Suspect]
     Indication: CELLULITIS OF HAND
     Route: 042
     Dates: start: 20121119, end: 20121125

REACTIONS (1)
  - Red man syndrome [None]
